FAERS Safety Report 23560660 (Version 1)
Quarter: 2024Q1

REPORT INFORMATION
  Report Type: Spontaneous
  Country: GB (occurrence: GB)
  Receive Date: 20240223
  Receipt Date: 20240223
  Transmission Date: 20240410
  Serious: Yes (Hospitalization, Congenital Anomaly, Other)
  Sender: FDA-Public Use
  Company Number: GB-SA-SAC20210121000714

PATIENT
  Sex: Male

DRUGS (2)
  1. LAMOTRIGINE [Suspect]
     Active Substance: LAMOTRIGINE
     Indication: Product used for unknown indication
     Dosage: 100 MILLIGRAM
     Route: 064
  2. VALPROATE SODIUM [Suspect]
     Active Substance: VALPROATE SODIUM
     Indication: Product used for unknown indication
     Dosage: 3000 MILLIGRAM, QD
     Route: 064

REACTIONS (6)
  - Foetal anticonvulsant syndrome [Unknown]
  - Fine motor skill dysfunction [Unknown]
  - Dysgraphia [Unknown]
  - Visual impairment [Unknown]
  - Speech disorder [Unknown]
  - Foetal exposure during pregnancy [Unknown]
